FAERS Safety Report 7138750-9 (Version None)
Quarter: 2010Q4

REPORT INFORMATION
  Report Type: 
  Country: None (occurrence: None)
  Receive Date: 20101202
  Receipt Date: 20101202
  Transmission Date: 20110411
  Serious: Yes (Hospitalization)
  Sender: FDA-Public Use
  Company Number: None

PATIENT
  Sex: Female
  Weight: 40 kg

DRUGS (7)
  1. SUNITINIB [Suspect]
     Indication: RENAL CANCER METASTATIC
     Dosage: 50MG ONCE DAILY
     Dates: start: 20101110, end: 20101130
  2. PREVACID [Concomitant]
  3. REGLAN [Concomitant]
  4. COLACE [Concomitant]
  5. OXYCODONE [Concomitant]
  6. COMPAZINE [Concomitant]
  7. KYTRIL [Concomitant]

REACTIONS (3)
  - HAEMATOCRIT DECREASED [None]
  - HAEMATURIA [None]
  - PLATELET COUNT DECREASED [None]
